FAERS Safety Report 16787949 (Version 1)
Quarter: 2019Q3

REPORT INFORMATION
  Report Type: Spontaneous
  Country: IT (occurrence: IT)
  Receive Date: 20190909
  Receipt Date: 20190909
  Transmission Date: 20191005
  Serious: Yes (Death, Hospitalization, Other)
  Sender: FDA-Public Use
  Company Number: IT-009507513-1906ITA009723

PATIENT
  Age: 74 Year
  Sex: Male
  Weight: 68 kg

DRUGS (10)
  1. FUROSEMIDE. [Concomitant]
     Active Substance: FUROSEMIDE
  2. FUROSEMIDE. [Concomitant]
     Active Substance: FUROSEMIDE
  3. ALLOPURINOL. [Concomitant]
     Active Substance: ALLOPURINOL
  4. ALLOPURINOL. [Concomitant]
     Active Substance: ALLOPURINOL
  5. HEPARIN [Concomitant]
     Active Substance: HEPARIN SODIUM
  6. KEYTRUDA [Suspect]
     Active Substance: PEMBROLIZUMAB
     Indication: LUNG CANCER METASTATIC
     Dosage: 200 MILLIGRAM, CYCLICAL
     Route: 041
     Dates: start: 20190201, end: 20190502
  7. KEYTRUDA [Suspect]
     Active Substance: PEMBROLIZUMAB
     Dosage: 200 MILLIGRAM, (5TH AND LAST INFUSION)
     Route: 041
     Dates: start: 20190617, end: 20190617
  8. TARGIN [Concomitant]
     Active Substance: NALOXONE HYDROCHLORIDE\OXYCODONE HYDROCHLORIDE
  9. VASEXTEN (BARNIDIPINE HYDROCHLORIDE) [Concomitant]
     Active Substance: BARNIDIPINE HYDROCHLORIDE
  10. HEPARIN [Concomitant]
     Active Substance: HEPARIN SODIUM

REACTIONS (3)
  - Malignant neoplasm progression [Fatal]
  - Drug ineffective [Fatal]
  - Adrenal insufficiency [Recovered/Resolved]

NARRATIVE: CASE EVENT DATE: 2019
